FAERS Safety Report 9494087 (Version 1)
Quarter: 2013Q3

REPORT INFORMATION
  Report Type: Spontaneous
  Country: US (occurrence: None)
  Receive Date: 20130829
  Receipt Date: 20130829
  Transmission Date: 20140515
  Serious: Yes (Other)
  Sender: FDA-Public Use
  Company Number: None

PATIENT
  Age: 77 Year
  Sex: Female
  Weight: 59.5 kg

DRUGS (1)
  1. VENOFER [Suspect]
     Indication: ANAEMIA

REACTIONS (11)
  - Pain in extremity [None]
  - Musculoskeletal stiffness [None]
  - Local swelling [None]
  - Nausea [None]
  - Headache [None]
  - Chest pain [None]
  - Dyspepsia [None]
  - Bradycardia [None]
  - Hypotension [None]
  - Blood pressure systolic increased [None]
  - Infusion related reaction [None]
